FAERS Safety Report 21784772 (Version 4)
Quarter: 2023Q2

REPORT INFORMATION
  Report Type: Report from Study
  Country: FR (occurrence: FR)
  Receive Date: 20221227
  Receipt Date: 20230404
  Transmission Date: 20230722
  Serious: Yes (Hospitalization)
  Sender: FDA-Public Use
  Company Number: FR-ABBVIE-4250810

PATIENT
  Age: 28 Year
  Sex: Male
  Weight: 82 kg

DRUGS (25)
  1. UPADACITINIB [Suspect]
     Active Substance: UPADACITINIB
     Indication: Rheumatoid arthritis
     Route: 048
     Dates: start: 20221214, end: 20230115
  2. UPADACITINIB [Suspect]
     Active Substance: UPADACITINIB
     Indication: Rheumatoid arthritis
     Route: 048
     Dates: start: 20210213, end: 20221115
  3. METHOTREXATE [Concomitant]
     Active Substance: METHOTREXATE
     Indication: Rheumatoid arthritis
     Route: 048
     Dates: start: 20210507, end: 20220428
  4. METHOTREXATE [Concomitant]
     Active Substance: METHOTREXATE
     Indication: Rheumatoid arthritis
     Route: 058
     Dates: start: 20210211, end: 20210507
  5. METHOTREXATE [Concomitant]
     Active Substance: METHOTREXATE
     Indication: Rheumatoid arthritis
     Route: 048
     Dates: start: 20220515, end: 20221119
  6. METHOTREXATE [Concomitant]
     Active Substance: METHOTREXATE
     Indication: Rheumatoid arthritis
     Route: 048
     Dates: start: 20221214, end: 20230108
  7. PREDNISONE [Concomitant]
     Active Substance: PREDNISONE
     Indication: Rheumatoid arthritis
     Dosage: 10 MILLIGRAM
     Route: 048
     Dates: start: 20210211
  8. PREDNISONE [Concomitant]
     Active Substance: PREDNISONE
     Indication: Rheumatoid arthritis
     Route: 048
     Dates: start: 20210211
  9. METHOTREXATE SODIUM [Concomitant]
     Active Substance: METHOTREXATE SODIUM
     Indication: Rheumatoid arthritis
     Route: 058
     Dates: start: 20210201, end: 20210502
  10. Amitriptyline 40 Milligram/Milliliters [Concomitant]
     Indication: Hip arthroplasty
     Dosage: 4 DROP
     Route: 048
     Dates: start: 20221214
  11. TRAMADOL HYDROCHLORIDE [Concomitant]
     Active Substance: TRAMADOL HYDROCHLORIDE
     Indication: Hip arthroplasty
     Dosage: TIME INTERVAL: 0.16666667 DAYS
     Route: 048
     Dates: start: 20221122
  12. ONDANSETRON [Concomitant]
     Active Substance: ONDANSETRON
     Indication: Hip arthroplasty
     Dosage: TIME INTERVAL: 0.33333333 DAYS
     Route: 042
     Dates: start: 20221122, end: 20221124
  13. MORPHINE SULFATE [Concomitant]
     Active Substance: MORPHINE SULFATE
     Indication: Hip arthroplasty
     Dosage: TIME INTERVAL: 0.16666667 DAYS
     Route: 048
     Dates: start: 20221122, end: 20221124
  14. ZOPICLONE [Concomitant]
     Active Substance: ZOPICLONE
     Indication: Hip arthroplasty
     Dosage: 7.5 MILLIGRAM
     Route: 048
     Dates: start: 20221125
  15. ZOPICLONE [Concomitant]
     Active Substance: ZOPICLONE
     Indication: Hip arthroplasty
     Route: 048
     Dates: start: 20221125
  16. FOLIC ACID [Concomitant]
     Active Substance: FOLIC ACID
     Indication: Rheumatoid arthritis
     Route: 048
     Dates: start: 20200220, end: 20221119
  17. ESOMEPRAZOLE [Concomitant]
     Active Substance: ESOMEPRAZOLE
     Indication: Hip arthroplasty
     Dosage: 20 MILLIGRAM
     Route: 048
     Dates: start: 20221122
  18. ESOMEPRAZOLE [Concomitant]
     Active Substance: ESOMEPRAZOLE
     Indication: Hip arthroplasty
     Route: 048
     Dates: start: 20221122
  19. CHOLECALCIFEROL [Concomitant]
     Active Substance: CHOLECALCIFEROL
     Indication: Rheumatoid arthritis
     Route: 048
     Dates: start: 20210730
  20. NEFOPAM [Concomitant]
     Active Substance: NEFOPAM
     Indication: Rheumatoid arthritis
     Dosage: AS NEEDED
     Route: 048
     Dates: start: 20201217
  21. SALAZOPYRINE [Concomitant]
     Active Substance: SULFASALAZINE
     Indication: Rheumatoid arthritis
     Route: 048
     Dates: start: 20210521
  22. ENOXAPARIN SODIUM [Concomitant]
     Active Substance: ENOXAPARIN SODIUM
     Indication: Hip arthroplasty
     Route: 058
     Dates: start: 20221122, end: 20221208
  23. POLYETHYLENE GLYCOLS [Concomitant]
     Active Substance: POLYETHYLENE GLYCOLS
     Indication: Hip arthroplasty
     Dosage: 13.125 GRAM
     Route: 048
     Dates: start: 20221124
  24. POLYETHYLENE GLYCOLS [Concomitant]
     Active Substance: POLYETHYLENE GLYCOLS
     Indication: Hip arthroplasty
     Dosage: 13.125 GRAM
     Route: 048
     Dates: start: 20221124
  25. ELIQUIS [Concomitant]
     Active Substance: APIXABAN
     Indication: Hip arthroplasty
     Route: 048
     Dates: start: 20221208, end: 20221227

REACTIONS (1)
  - Hip arthroplasty [Recovered/Resolved]

NARRATIVE: CASE EVENT DATE: 20221121
